FAERS Safety Report 10201240 (Version 5)
Quarter: 2014Q3

REPORT INFORMATION
  Report Type: Spontaneous
  Country: JP (occurrence: JP)
  Receive Date: 20140528
  Receipt Date: 20140827
  Transmission Date: 20150326
  Serious: Yes (Hospitalization, Other)
  Sender: FDA-Public Use
  Company Number: JP-PFIZER INC-2014144303

PATIENT
  Age: 72 Year
  Sex: Male
  Weight: 58.36 kg

DRUGS (14)
  1. MAGLAX [Concomitant]
     Active Substance: MAGNESIUM OXIDE
     Indication: CONSTIPATION
     Dosage: 750 MG, DAILY
     Route: 048
     Dates: start: 20140520, end: 20140521
  2. TAKEPRON [Concomitant]
     Active Substance: LANSOPRAZOLE
     Indication: GASTROOESOPHAGEAL REFLUX DISEASE
     Dosage: 30 MG, 1X/DAY
     Route: 042
     Dates: start: 20140522
  3. PARIET [Concomitant]
     Active Substance: RABEPRAZOLE SODIUM
     Indication: GASTROOESOPHAGEAL REFLUX DISEASE
     Dosage: 10 MG, 1X/DAY
     Route: 048
     Dates: start: 20140219, end: 20140318
  4. LANSOPRAZOLE. [Concomitant]
     Active Substance: LANSOPRAZOLE
     Indication: GASTROOESOPHAGEAL REFLUX DISEASE
     Dosage: 10 MG, 1X/DAY
     Route: 048
     Dates: start: 20140308, end: 20140521
  5. SOLDACTONE [Concomitant]
     Active Substance: CANRENOATE POTASSIUM
     Indication: SURGERY
     Dosage: 100 MG, 1X/DAY
     Route: 042
     Dates: start: 20140522
  6. DIGOSIN [Concomitant]
     Active Substance: DIGOXIN
     Indication: SURGERY
     Dosage: UNK
     Route: 042
     Dates: start: 20140522
  7. CEFMETAZON [Concomitant]
     Active Substance: CEFMETAZOLE SODIUM
     Indication: SURGERY
     Dosage: 0.25 G, 1X/DAY
     Route: 042
     Dates: start: 20140522
  8. VITAMEDIN CAPSULE [Concomitant]
     Indication: NUTRITIONAL SUPPLEMENTATION
     Dosage: 100 MG, DAILY
     Route: 048
     Dates: start: 20140521, end: 20140521
  9. VEEN D [Concomitant]
     Active Substance: CALCIUM CHLORIDE\DEXTROSE\POTASSIUM CHLORIDE\SODIUM ACETATE\SODIUM CHLORIDE
     Indication: SURGERY
     Dosage: 500 ML, UNK
     Route: 042
     Dates: start: 20140522
  10. SOLANAX [Suspect]
     Active Substance: ALPRAZOLAM
     Indication: INSOMNIA
     Dosage: 0.4 MG, 1X/DAY, BEFORE BEDTIME
     Route: 048
     Dates: start: 2006, end: 20140521
  11. LENDORMIN [Suspect]
     Active Substance: BROTIZOLAM
     Indication: INSOMNIA
     Dosage: 0.25 MG, 1X/DAY
     Route: 048
     Dates: start: 2006, end: 20140521
  12. AMLODIPINE [Concomitant]
     Active Substance: AMLODIPINE BESYLATE
     Indication: HYPERTENSION
     Dosage: 2.5 MG, 1X/DAY
     Route: 048
     Dates: start: 20140523
  13. FLIVAS [Concomitant]
     Active Substance: NAFTOPIDIL
     Indication: BENIGN PROSTATIC HYPERPLASIA
     Dosage: 75 MG, 1X/DAY
     Route: 048
     Dates: end: 20140521
  14. VITAMEDIN INTRAVENOUS [Concomitant]
     Active Substance: CYANOCOBALAMIN\PYRIDOXINE HYDROCHLORIDE\THIAMINE
     Indication: SURGERY
     Dosage: 1 VIAL, 1X/DAY
     Route: 042
     Dates: start: 20140522

REACTIONS (3)
  - Drug withdrawal syndrome [Recovered/Resolved]
  - Oesophageal disorder [Unknown]
  - Altered state of consciousness [Recovered/Resolved]

NARRATIVE: CASE EVENT DATE: 2014
